FAERS Safety Report 10037425 (Version 1)
Quarter: 2014Q1

REPORT INFORMATION
  Report Type: Spontaneous
  Country: US (occurrence: None)
  Receive Date: 20140306
  Receipt Date: 20140306
  Transmission Date: 20141002
  Serious: Yes (Other)
  Sender: FDA-Public Use
  Company Number: 163-21880-13064105

PATIENT
  Age: 65 Year
  Sex: Female
  Weight: 90.7 kg

DRUGS (10)
  1. REVLIMID (LENALIDOMIDE) (25 MILLIGRAM CAPSULES) [Suspect]
     Indication: PLASMA CELL MYELOMA
     Dosage: 21 IN 21 D
     Route: 048
     Dates: start: 20130123
  2. DEXAMETHASONE(DEXAMETHASONE) [Concomitant]
  3. ACYCLOVIR(ACICLOVIR) [Concomitant]
  4. PRILOSEC (OMEPRAZOLE) [Concomitant]
  5. ENOXAPARIN(ENOXAPARIN) [Concomitant]
  6. COUMADIN(WARFARIN SODIUM)(TABLETS) [Concomitant]
  7. HEPARIN(HEPARIN) [Concomitant]
  8. ZOLOFT(SERTRALINE HYDROCHLORIDE)(TABLETS) [Concomitant]
  9. SIMVASTATIN(SIMVASTATIN)(TABLETS) [Concomitant]
  10. LORATADINE(LORATADINE(TABLETS) [Concomitant]

REACTIONS (6)
  - Thrombosis [None]
  - Full blood count abnormal [None]
  - Local swelling [None]
  - Rash [None]
  - Hypoaesthesia [None]
  - Fatigue [None]
